FAERS Safety Report 11169485 (Version 1)
Quarter: 2015Q2

REPORT INFORMATION
  Report Type: Spontaneous
  Country: DE (occurrence: DE)
  Receive Date: 20150605
  Receipt Date: 20150605
  Transmission Date: 20150821
  Serious: Yes (Hospitalization)
  Sender: FDA-Public Use
  Company Number: DE-TEVA-566948GER

PATIENT
  Age: 45 Year
  Sex: Male

DRUGS (2)
  1. SALBUTAMOL-RATIOPHARM N DOSIERAEROSOL [Suspect]
     Active Substance: ALBUTEROL
     Indication: ASTHMA
     Route: 055
     Dates: start: 2005
  2. SALBUTAMOL-RATIOPHARM N DOSIERAEROSOL [Suspect]
     Active Substance: ALBUTEROL
     Dosage: 8 DOSAGE FORMS DAILY; 1 DF CONTAINS 2 PUFFS
     Route: 055
     Dates: start: 20150224, end: 20150224

REACTIONS (5)
  - Tongue biting [Unknown]
  - Foaming at mouth [Unknown]
  - Epilepsy [Recovered/Resolved]
  - Thoracic vertebral fracture [Unknown]
  - Loss of consciousness [Unknown]

NARRATIVE: CASE EVENT DATE: 20150224
